FAERS Safety Report 5073558-X (Version None)
Quarter: 2006Q3

REPORT INFORMATION
  Report Type: 
  Country: None (occurrence: None)
  Receive Date: 20060717
  Receipt Date: 20060106
  Transmission Date: 20061208
  Serious: No
  Sender: FDA-Public Use
  Company Number: 2006000082

PATIENT
  Sex: Male

DRUGS (5)
  1. TARCEVA [Suspect]
     Indication: NON-SMALL CELL LUNG CANCER
     Dosage: 150 MG (QD), ORAL
     Route: 048
     Dates: start: 20051106
  2. PHENYTOIN [Concomitant]
  3. ASPIRIN [Concomitant]
  4. HYDROCODONE/APAP (VICODIN) [Concomitant]
  5. MARIJUANA (CANNABIS) [Concomitant]

REACTIONS (1)
  - DRUG SCREEN POSITIVE [None]
